FAERS Safety Report 6909766-X (Version None)
Quarter: 2010Q3

REPORT INFORMATION
  Report Type: 
  Country: None (occurrence: None)
  Receive Date: 20100806
  Receipt Date: 20100803
  Transmission Date: 20110219
  Serious: Yes (Hospitalization)
  Sender: FDA-Public Use
  Company Number: US-BIOGENIDEC-2010BI024169

PATIENT
  Age: 53 Year
  Sex: Male

DRUGS (1)
  1. AVONEX [Suspect]
     Indication: MULTIPLE SCLEROSIS
     Route: 030
     Dates: start: 19990416

REACTIONS (5)
  - ABASIA [None]
  - INJECTION SITE CELLULITIS [None]
  - OEDEMA PERIPHERAL [None]
  - PYREXIA [None]
  - SEPSIS [None]
